FAERS Safety Report 5113591-2 (Version None)
Quarter: 2006Q3

REPORT INFORMATION
  Report Type: 
  Country: None (occurrence: None)
  Receive Date: 20060921
  Receipt Date: 20060921
  Transmission Date: 20061208
  Serious: Yes (Hospitalization)
  Sender: FDA-Public Use
  Company Number: None

PATIENT
  Age: 60 Year
  Sex: Female
  Weight: 86 kg

DRUGS (13)
  1. WARFARIN SODIUM [Suspect]
     Indication: ATRIAL FIBRILLATION
     Dosage: 2.5/5 MG PO QD ALT
     Route: 048
  2. TERBINAFINE [Suspect]
     Indication: RASH
     Dosage: 1% BID TOPICAL
     Route: 061
     Dates: start: 20060507, end: 20060523
  3. AMIODARONE HCL [Concomitant]
  4. ENALAPRIL [Concomitant]
  5. FUROSEMIDE [Concomitant]
  6. POTASSIUM CHLORIDE [Concomitant]
  7. DILTIAZEM HCL [Concomitant]
  8. FERROUS SULFATE TAB [Concomitant]
  9. OMEPRAZOLE [Concomitant]
  10. DOCUSATE [Concomitant]
  11. M.V.I. [Concomitant]
  12. ESCITALOPRAM [Concomitant]
  13. FLUTICASONE/SALMETEROL [Concomitant]

REACTIONS (3)
  - EPISTAXIS [None]
  - INTERNATIONAL NORMALISED RATIO INCREASED [None]
  - RASH [None]
